FAERS Safety Report 10967813 (Version 1)
Quarter: 2015Q1

REPORT INFORMATION
  Report Type: Spontaneous
  Country: US (occurrence: US)
  Receive Date: 20150330
  Receipt Date: 20150330
  Transmission Date: 20150721
  Serious: No
  Sender: FDA-Public Use
  Company Number: US-ASTRAZENECA-2015SE25831

PATIENT
  Sex: Female
  Weight: 68.5 kg

DRUGS (6)
  1. PRO AIR FHA [Concomitant]
     Indication: CHRONIC OBSTRUCTIVE PULMONARY DISEASE
     Dosage: 2 PUFFS AS NEEDED
     Route: 055
  2. RESCUE INHALER [Concomitant]
     Indication: DYSPNOEA
     Dosage: AS NEEDED
  3. SPIRIVA [Concomitant]
     Active Substance: TIOTROPIUM BROMIDE MONOHYDRATE
  4. SYMBICORT [Suspect]
     Active Substance: BUDESONIDE\FORMOTEROL FUMARATE DIHYDRATE
     Indication: CHRONIC OBSTRUCTIVE PULMONARY DISEASE
     Dosage: 160/4.5 MCG, 2 PUFFS DAILY
     Route: 055
  5. PRO AIR FHA [Concomitant]
     Indication: CHRONIC OBSTRUCTIVE PULMONARY DISEASE
     Route: 055
  6. RESCUE INHALER [Concomitant]
     Indication: WHEEZING
     Dosage: AS NEEDED

REACTIONS (4)
  - Productive cough [Unknown]
  - Sleep apnoea syndrome [Unknown]
  - Off label use [Unknown]
  - Insomnia [Unknown]
